FAERS Safety Report 25051352 (Version 1)
Quarter: 2025Q1

REPORT INFORMATION
  Report Type: Spontaneous
  Country: US (occurrence: US)
  Receive Date: 20250307
  Receipt Date: 20250307
  Transmission Date: 20250409
  Serious: No
  Sender: Haleon PLC
  Company Number: US-HALEON-2231823

PATIENT

DRUGS (3)
  1. ADVIL [Suspect]
     Active Substance: IBUPROFEN
     Indication: Myalgia
  2. ADVIL [Suspect]
     Active Substance: IBUPROFEN
     Indication: Back pain
  3. ADVIL [Suspect]
     Active Substance: IBUPROFEN
     Indication: Sleep disorder

REACTIONS (2)
  - Somnolence [Unknown]
  - Therapeutic response unexpected [Unknown]
